FAERS Safety Report 9041584 (Version 1)
Quarter: 2013Q1

REPORT INFORMATION
  Report Type: Report from Study
  Country: US (occurrence: US)
  Receive Date: 20130129
  Receipt Date: 20130129
  Transmission Date: 20140127
  Serious: No
  Sender: FDA-Public Use
  Company Number: US-ABBOTT-12P-163-0904321-00

PATIENT
  Age: 58 Year
  Sex: Female

DRUGS (12)
  1. HUMIRA 40 MG/0.8 ML PEN [Suspect]
     Indication: RHEUMATOID ARTHRITIS
     Dates: start: 20120120
  2. EFFEXOR XR [Concomitant]
     Indication: DEPRESSION
     Dosage: 2 TABS AM AND 1 TAB QHS
     Route: 048
  3. CLONIPINE [Concomitant]
     Indication: DEPRESSION
     Dosage: AT BEDTIME
     Route: 048
  4. LIPITOR [Concomitant]
     Indication: BLOOD CHOLESTEROL INCREASED
     Dosage: AT BEDTIME
     Route: 048
  5. PLAVIX [Concomitant]
     Indication: CORONARY ARTERY DISEASE
     Dosage: IN THE MORNING
     Route: 048
  6. LISINOPRIL [Concomitant]
     Indication: HYPERTENSION
     Route: 048
  7. IMDUR [Concomitant]
     Indication: CHEST PAIN
     Dosage: IN THE MORNING
     Route: 048
  8. NITROGLYCERIN [Concomitant]
     Indication: CHEST PAIN
     Route: 060
  9. TOPROL XL [Concomitant]
     Indication: PRODUCT USED FOR UNKNOWN INDICATION
     Dosage: IN THE MORNING
  10. METHOTREXATE [Concomitant]
     Indication: PRODUCT USED FOR UNKNOWN INDICATION
  11. GLUCOSAMINE + CHONDROITIN [Concomitant]
     Indication: VITAMIN SUPPLEMENTATION
  12. ASPIRIN [Concomitant]
     Indication: CORONARY ARTERY DISEASE

REACTIONS (3)
  - Periorbital oedema [Not Recovered/Not Resolved]
  - Erythema [Not Recovered/Not Resolved]
  - Skin exfoliation [Not Recovered/Not Resolved]
